FAERS Safety Report 25072720 (Version 1)
Quarter: 2025Q1

REPORT INFORMATION
  Report Type: Report from Study
  Country: US (occurrence: US)
  Receive Date: 20250313
  Receipt Date: 20250313
  Transmission Date: 20250408
  Serious: Yes (Other)
  Sender: ABBVIE
  Company Number: US-ABBVIE-6173324

PATIENT
  Sex: Female
  Weight: 73 kg

DRUGS (1)
  1. ARMOUR THYROID [Suspect]
     Active Substance: THYROID, PORCINE
     Indication: Hypothyroidism
     Dosage: FORM STRENGTH: 60 MILLIGRAM
     Route: 048
     Dates: start: 2005

REACTIONS (1)
  - Blindness [Not Recovered/Not Resolved]
